FAERS Safety Report 6784868-X (Version None)
Quarter: 2010Q2

REPORT INFORMATION
  Report Type: 
  Country: None (occurrence: None)
  Receive Date: 20100622
  Receipt Date: 20100615
  Transmission Date: 20101027
  Serious: Yes (Hospitalization)
  Sender: FDA-Public Use
  Company Number: DE-BAXTER-2010BH013995

PATIENT
  Age: 80 Year
  Sex: Female
  Weight: 53 kg

DRUGS (13)
  1. METRONIDAZOLE [Suspect]
     Indication: PERINEPHRIC ABSCESS
     Route: 041
     Dates: start: 20091110, end: 20091120
  2. METRONIDAZOLE [Suspect]
     Indication: PERINEPHRIC ABSCESS
     Route: 048
     Dates: start: 20091121, end: 20091208
  3. CEFTRIAXONE [Suspect]
     Indication: PERINEPHRIC ABSCESS
     Route: 040
     Dates: start: 20091110, end: 20091120
  4. CEFPODOXIME PROXETIL [Suspect]
     Indication: PERINEPHRIC ABSCESS
     Route: 048
     Dates: start: 20091121, end: 20091209
  5. PANTOZOL [Interacting]
     Indication: PROPHYLAXIS AGAINST GASTROINTESTINAL ULCER
     Route: 048
     Dates: start: 20090116
  6. CITALOPRAM [Concomitant]
     Indication: DEPRESSION
     Route: 048
     Dates: start: 20091110
  7. METAMIZOLE [Concomitant]
     Indication: PAIN
     Route: 048
     Dates: start: 20091110
  8. FERRO DUODENAL ^SANOL^ [Concomitant]
     Indication: IRON DEFICIENCY ANAEMIA
     Route: 048
     Dates: start: 20090116, end: 20091209
  9. NALOXONE HYDROCHLORIDE [Concomitant]
     Indication: PAIN
     Dosage: 1 DF= 10MG OXYCODON + 5MG NALOXON
     Route: 048
     Dates: start: 20091110
  10. DIGITOXIN [Concomitant]
     Indication: ATRIAL FIBRILLATION
     Route: 048
     Dates: start: 20091110
  11. TORASEMIDE SODIUM [Concomitant]
     Indication: HYPERTENSION
     Route: 048
     Dates: start: 20071101
  12. SPIRONOLACTONE [Concomitant]
     Indication: HYPERTENSION
     Route: 048
  13. OXYCODONE HYDROCHLORIDE [Concomitant]
     Indication: PAIN
     Route: 048

REACTIONS (1)
  - CLOSTRIDIUM DIFFICILE COLITIS [None]
